FAERS Safety Report 7250744-1 (Version None)
Quarter: 2011Q1

REPORT INFORMATION
  Report Type: 
  Country: None (occurrence: None)
  Receive Date: 20110119
  Receipt Date: 20101122
  Transmission Date: 20110831
  Serious: Yes (Death, Life-Threatening, Hospitalization)
  Sender: FDA-Public Use
  Company Number: 506163

PATIENT
  Age: 84 Year
  Sex: Male

DRUGS (2)
  1. CYTARABINE [Suspect]
     Indication: ACUTE MYELOID LEUKAEMIA
     Dosage: SEE IMAGE
     Dates: start: 20060809, end: 20060818
  2. CYTARABINE [Suspect]
     Indication: ACUTE MYELOID LEUKAEMIA
     Dosage: SEE IMAGE
     Dates: start: 20060906, end: 20060915

REACTIONS (17)
  - RENAL FAILURE ACUTE [None]
  - HYPOTENSION [None]
  - CARDIAC ARREST [None]
  - PNEUMONIA [None]
  - ACUTE RESPIRATORY DISTRESS SYNDROME [None]
  - RESPIRATORY FAILURE [None]
  - EPISTAXIS [None]
  - HYPOMAGNESAEMIA [None]
  - METABOLIC ACIDOSIS [None]
  - FEBRILE NEUTROPENIA [None]
  - HYPOCALCAEMIA [None]
  - BRADYCARDIA [None]
  - UPPER GASTROINTESTINAL HAEMORRHAGE [None]
  - HYPOKALAEMIA [None]
  - VENTRICULAR ARRHYTHMIA [None]
  - SEPTIC SHOCK [None]
  - REFUSAL OF TREATMENT BY RELATIVE [None]
